FAERS Safety Report 7503197-X (Version None)
Quarter: 2011Q2

REPORT INFORMATION
  Report Type: 
  Country: None (occurrence: None)
  Receive Date: 20110524
  Receipt Date: 20110524
  Transmission Date: 20111010
  Serious: Yes (Hospitalization)
  Sender: FDA-Public Use
  Company Number: None

PATIENT
  Age: 67 Year
  Sex: Female
  Weight: 83 kg

DRUGS (2)
  1. MEROPENEM [Suspect]
     Indication: PERITONEAL ABSCESS
     Dosage: 1GM Q12 IV
     Route: 042
     Dates: start: 20110516, end: 20110519
  2. SODIUM CHLORIDE [Suspect]
     Dosage: 100ML Q12 IV
     Route: 042

REACTIONS (1)
  - DERMATITIS BULLOUS [None]
